FAERS Safety Report 4430746-0 (Version None)
Quarter: 2004Q3

REPORT INFORMATION
  Report Type: 
  Country: None (occurrence: None)
  Receive Date: 20040818
  Receipt Date: 20040811
  Transmission Date: 20050211
  Serious: Yes (Hospitalization)
  Sender: FDA-Public Use
  Company Number: 2004CG01589

PATIENT
  Age: 69 Year
  Sex: Female

DRUGS (6)
  1. OMEPRAZOLE [Suspect]
     Dates: start: 20040401, end: 20040616
  2. DEROXAT [Suspect]
     Dates: start: 20040401, end: 20040616
  3. SECTRAL [Concomitant]
  4. PREVISCAN [Concomitant]
  5. LIPANOR [Concomitant]
  6. COZAAR [Concomitant]

REACTIONS (7)
  - BRADYCARDIA [None]
  - DIZZINESS [None]
  - FATIGUE [None]
  - HEADACHE [None]
  - HEPATITIS ACUTE [None]
  - INFLAMMATION [None]
  - RENAL FAILURE [None]
